FAERS Safety Report 7288058-6 (Version None)
Quarter: 2011Q1

REPORT INFORMATION
  Report Type: 
  Country: None (occurrence: None)
  Receive Date: 20110211
  Receipt Date: 20110203
  Transmission Date: 20110831
  Serious: Yes (Life-Threatening, Hospitalization)
  Sender: FDA-Public Use
  Company Number: PHHY2011DE09856

PATIENT
  Age: 57 Year
  Sex: Female
  Weight: 110 kg

DRUGS (7)
  1. MICARDIS [Suspect]
     Indication: HYPERTENSION
     Dosage: 1 DF, QD
     Route: 048
     Dates: start: 20080601, end: 20100610
  2. REWODINA [Suspect]
     Indication: BACK PAIN
     Dosage: 50 MG,
     Route: 048
     Dates: start: 20100608, end: 20100610
  3. NORVASC [Concomitant]
     Indication: HYPERTENSION
     Dosage: 5 MG,
     Route: 048
     Dates: start: 20100401
  4. LEVOTHYROXINE SODIUM [Concomitant]
     Indication: HYPOTHYROIDISM
     Dosage: 75 MG,
     Route: 048
     Dates: start: 20080601
  5. MUSARIL [Concomitant]
     Indication: MUSCLE TIGHTNESS
     Dosage: 50 MG,
     Route: 048
     Dates: start: 20100608, end: 20100610
  6. VOLTAREN [Suspect]
     Indication: BACK PAIN
     Dosage: 25 MG,
     Route: 048
     Dates: start: 20100605, end: 20100608
  7. BISOHEXAL [Concomitant]
     Indication: HYPERTENSION
     Dosage: 5 MG,
     Route: 048
     Dates: start: 20080601

REACTIONS (12)
  - ANAEMIA HAEMOLYTIC AUTOIMMUNE [None]
  - NAUSEA [None]
  - RENAL FAILURE [None]
  - HEPATORENAL SYNDROME [None]
  - JAUNDICE [None]
  - MALAISE [None]
  - VOMITING [None]
  - ANURIA [None]
  - ASTHENIA [None]
  - HEPATIC FAILURE [None]
  - BACK PAIN [None]
  - ABDOMINAL DISCOMFORT [None]
